FAERS Safety Report 5272647-4 (Version None)
Quarter: 2007Q1

REPORT INFORMATION
  Report Type: 
  Country: None (occurrence: None)
  Receive Date: 20061219
  Receipt Date: 20060919
  Transmission Date: 20070707
  Serious: Yes (Hospitalization, Other)
  Sender: FDA-Public Use
  Company Number: US-JNJFOC-20060803092

PATIENT
  Age: 27 Year
  Sex: Female

DRUGS (5)
  1. ORTHO EVRA [Suspect]
     Indication: OLIGOMENORRHOEA
     Dates: start: 20031201, end: 20040201
  2. IBUPROFEN [Concomitant]
  3. RITALIN [Concomitant]
  4. Z-PAK (ANTIBIOTICS) [Concomitant]
  5. CODEINE SUL TAB [Concomitant]

REACTIONS (1)
  - PULMONARY EMBOLISM [None]
